FAERS Safety Report 9083233 (Version 1)
Quarter: 2013Q1

REPORT INFORMATION
  Report Type: Report from Study
  Country: US (occurrence: US)
  Receive Date: 20130131
  Receipt Date: 20130131
  Transmission Date: 20140127
  Serious: No
  Sender: FDA-Public Use
  Company Number: US-ABBOTT-12P-163-0989908-00

PATIENT
  Age: 34 None
  Sex: Male
  Weight: 86.26 kg

DRUGS (2)
  1. HUMIRA [Suspect]
     Indication: PSORIATIC ARTHROPATHY
     Route: 058
     Dates: start: 2007
  2. UNKNOWN TOPICAL CREAM [Concomitant]
     Indication: PSORIATIC ARTHROPATHY
     Route: 061

REACTIONS (5)
  - Cough [Not Recovered/Not Resolved]
  - Respiratory tract congestion [Not Recovered/Not Resolved]
  - Pyrexia [Unknown]
  - Pulmonary congestion [Not Recovered/Not Resolved]
  - Pneumonia [Recovered/Resolved]
